FAERS Safety Report 6178198-7 (Version None)
Quarter: 2009Q2

REPORT INFORMATION
  Report Type: 
  Country: None (occurrence: None)
  Receive Date: 20090504
  Receipt Date: 20090428
  Transmission Date: 20091009
  Serious: Yes (Hospitalization, Other)
  Sender: FDA-Public Use
  Company Number: US-ROXANE LABORATORIES, INC.-2009-RO-00418RO

PATIENT
  Age: 41 Year
  Sex: Male

DRUGS (9)
  1. MYCOPHENOLATE MOFETIL [Suspect]
     Indication: IMMUNOSUPPRESSION
     Dosage: 1500MG
  2. PREDNISONE [Suspect]
     Indication: IMMUNOSUPPRESSION
     Dosage: 5MG
  3. DEXAMETHASONE TAB [Suspect]
     Indication: INFLAMMATION
     Dosage: 40MG
     Route: 048
  4. TACROLIMUS [Suspect]
     Indication: IMMUNOSUPPRESSION
     Dosage: 12MG
  5. CEFTAZIDIME [Suspect]
     Indication: INFLAMMATION
     Dosage: 6G
     Route: 042
  6. CIPROFLOXACIN [Suspect]
     Dosage: 1200MG
     Route: 042
  7. VANCOMYCIN HCL [Suspect]
     Dosage: 2G
     Route: 042
  8. ACYCLOVIR [Concomitant]
     Indication: HERPES ZOSTER OTICUS
     Route: 042
  9. VALACYCLOVIR [Concomitant]
     Indication: HERPES ZOSTER OTICUS
     Dosage: 3000MG

REACTIONS (6)
  - DRUG INEFFECTIVE [None]
  - EPIGLOTTITIS [None]
  - HERPES ZOSTER OTICUS [None]
  - MASTOIDITIS [None]
  - PROPIONIBACTERIUM INFECTION [None]
  - STAPHYLOCOCCAL INFECTION [None]
